FAERS Safety Report 13579562 (Version 1)
Quarter: 2017Q2

REPORT INFORMATION
  Report Type: Spontaneous
  Country: US (occurrence: US)
  Receive Date: 20170524
  Receipt Date: 20170524
  Transmission Date: 20170830
  Serious: Yes (Disabling, Other)
  Sender: FDA-Public Use
  Company Number: None

PATIENT
  Age: 2 Year
  Sex: Male
  Weight: 14.4 kg

DRUGS (1)
  1. MIRALAX [Suspect]
     Active Substance: POLYETHYLENE GLYCOL 3350
     Indication: CONSTIPATION
     Dosage: ?          QUANTITY:1 CAPFUL;?
     Route: 048

REACTIONS (4)
  - Mental disorder [None]
  - Communication disorder [None]
  - Personality change [None]
  - Developmental delay [None]

NARRATIVE: CASE EVENT DATE: 20160101
